FAERS Safety Report 4488810-6 (Version None)
Quarter: 2004Q4

REPORT INFORMATION
  Report Type: 
  Country: None (occurrence: None)
  Receive Date: 20041029
  Receipt Date: 20030319
  Transmission Date: 20050328
  Serious: Yes (Life-Threatening, Hospitalization, Other)
  Sender: FDA-Public Use
  Company Number: US-MERCK-0303USA02027

PATIENT
  Age: 70 Year
  Sex: Female

DRUGS (9)
  1. VIOXX [Suspect]
     Indication: BACK PAIN
     Route: 048
     Dates: start: 20000107, end: 20000201
  2. VIOXX [Suspect]
     Indication: ARTHRALGIA
     Route: 048
     Dates: start: 20000107, end: 20000201
  3. ZOCOR [Concomitant]
     Route: 065
  4. VITAMIN E [Concomitant]
     Route: 065
  5. CENTRUM [Concomitant]
     Route: 065
  6. BETA CAROTENE [Concomitant]
     Route: 065
  7. PERCOCET [Concomitant]
     Route: 065
  8. TYLENOL W/ CODEINE NO. 3 [Concomitant]
     Route: 065
  9. ASCORBIC ACID [Concomitant]
     Route: 065

REACTIONS (115)
  - ABDOMINAL DISCOMFORT [None]
  - ACTIVATED PARTIAL THROMBOPLASTIN TIME PROLONGED [None]
  - ACUTE RESPIRATORY DISTRESS SYNDROME [None]
  - ACUTE SINUSITIS [None]
  - ANGINA PECTORIS [None]
  - AORTIC VALVE SCLEROSIS [None]
  - ARTERIOSCLEROSIS [None]
  - ARTHRALGIA [None]
  - ASPARTATE AMINOTRANSFERASE INCREASED [None]
  - ASPIRATION [None]
  - ASTHENIA [None]
  - ATELECTASIS [None]
  - ATRIAL FIBRILLATION [None]
  - BACK PAIN [None]
  - BLOOD ALBUMIN DECREASED [None]
  - BLOOD ALKALINE PHOSPHATASE INCREASED [None]
  - BLOOD BILIRUBIN INCREASED [None]
  - BLOOD BILIRUBIN UNCONJUGATED INCREASED [None]
  - BLOOD CHOLESTEROL INCREASED [None]
  - BLOOD HOMOCYSTEINE INCREASED [None]
  - BLOOD LACTATE DEHYDROGENASE INCREASED [None]
  - BLOOD PRESSURE INADEQUATELY CONTROLLED [None]
  - BLOOD SODIUM DECREASED [None]
  - BLOOD TRIGLYCERIDES INCREASED [None]
  - BREAST TENDERNESS [None]
  - CARDIAC FLUTTER [None]
  - CARDIO-RESPIRATORY ARREST [None]
  - CHEST WALL PAIN [None]
  - CHOLELITHIASIS [None]
  - COAGULOPATHY [None]
  - COLITIS ISCHAEMIC [None]
  - CORONARY ARTERY DISEASE [None]
  - DEHYDRATION [None]
  - DEPRESSION [None]
  - DERMATITIS [None]
  - DIARRHOEA [None]
  - DISSEMINATED INTRAVASCULAR COAGULATION [None]
  - DIVERTICULUM [None]
  - DRUG ERUPTION [None]
  - DRUG HYPERSENSITIVITY [None]
  - DYSPEPSIA [None]
  - DYSPNOEA EXERTIONAL [None]
  - EJECTION FRACTION DECREASED [None]
  - ELECTROCARDIOGRAM ABNORMAL [None]
  - ERYTHEMA [None]
  - EUSTACHIAN TUBE DISORDER [None]
  - EXTRADURAL ABSCESS [None]
  - FATIGUE [None]
  - FEELING ABNORMAL [None]
  - FIBRIN D DIMER INCREASED [None]
  - FIBRINOLYSIS [None]
  - GROIN PAIN [None]
  - HAEMATOCHEZIA [None]
  - HAEMORRHAGE [None]
  - HEPATIC FUNCTION ABNORMAL [None]
  - HYPERLIPIDAEMIA [None]
  - HYPERSENSITIVITY [None]
  - HYPOKALAEMIA [None]
  - HYPOKINESIA [None]
  - HYPOTENSION [None]
  - INFECTION [None]
  - INFLAMMATION [None]
  - INFLUENZA [None]
  - INFLUENZA LIKE ILLNESS [None]
  - INTERNATIONAL NORMALISED RATIO INCREASED [None]
  - INTERVERTEBRAL DISC DEGENERATION [None]
  - INTERVERTEBRAL DISC DISORDER [None]
  - INTERVERTEBRAL DISCITIS [None]
  - LIVER DISORDER [None]
  - MACULAR DEGENERATION [None]
  - MITRAL VALVE INCOMPETENCE [None]
  - MUCOSAL DRYNESS [None]
  - MUCOSAL ULCERATION [None]
  - MULTI-ORGAN FAILURE [None]
  - MUSCLE SPASMS [None]
  - MYALGIA [None]
  - MYOCARDIAL INFARCTION [None]
  - MYOCARDIAL ISCHAEMIA [None]
  - NAUSEA [None]
  - OEDEMA [None]
  - OSTEOARTHRITIS [None]
  - OSTEOMYELITIS [None]
  - OTITIS MEDIA [None]
  - PANCREATIC ATROPHY [None]
  - PANCREATITIS [None]
  - PERICARDIAL EFFUSION [None]
  - PLEURAL EFFUSION [None]
  - POSTNASAL DRIP [None]
  - PROTHROMBIN TIME PROLONGED [None]
  - PULMONARY OEDEMA [None]
  - RADICULAR PAIN [None]
  - RADICULITIS [None]
  - RASH [None]
  - RASH MORBILLIFORM [None]
  - RENAL FAILURE [None]
  - RENAL FAILURE ACUTE [None]
  - RENAL PAIN [None]
  - RENAL TUBULAR NECROSIS [None]
  - SELF-MEDICATION [None]
  - SEPSIS [None]
  - SINUS HEADACHE [None]
  - TENDERNESS [None]
  - THROMBOCYTOPENIA [None]
  - THROMBOSIS [None]
  - TOXIC SHOCK SYNDROME [None]
  - UPPER RESPIRATORY TRACT INFECTION [None]
  - URINARY TRACT INFECTION [None]
  - VAGINAL HAEMORRHAGE [None]
  - VENTRICULAR DYSFUNCTION [None]
  - VENTRICULAR FIBRILLATION [None]
  - VENTRICULAR HYPOKINESIA [None]
  - VENTRICULAR TACHYCARDIA [None]
  - VISION BLURRED [None]
  - VITAMIN K DEFICIENCY [None]
  - WHITE BLOOD CELL COUNT INCREASED [None]
